FAERS Safety Report 23277967 (Version 1)
Quarter: 2023Q4

REPORT INFORMATION
  Report Type: Spontaneous
  Country: US (occurrence: US)
  Receive Date: 20231208
  Receipt Date: 20231208
  Transmission Date: 20240110
  Serious: No
  Sender: FDA-Public Use
  Company Number: MYC23-00206

PATIENT

DRUGS (3)
  1. VIVJOA [Suspect]
     Active Substance: OTESECONAZOLE
     Indication: Infection
     Dosage: 600 MILLIGRAM, SINGLE, DAY ONE
     Route: 048
     Dates: start: 202211
  2. VIVJOA [Suspect]
     Active Substance: OTESECONAZOLE
     Dosage: 450 MILLIGRAM, SINGLE, DAY TWO
     Route: 048
     Dates: start: 202211
  3. VIVJOA [Suspect]
     Active Substance: OTESECONAZOLE
     Dosage: 150 MILLIGRAM, WEEKLY, STARTING DAY 14 EVERY SEVEN DAYS FOR 11 WEEKS
     Route: 048
     Dates: start: 202211

REACTIONS (1)
  - Drug ineffective [Unknown]
